FAERS Safety Report 7954527-6 (Version None)
Quarter: 2011Q4

REPORT INFORMATION
  Report Type: 
  Country: None (occurrence: None)
  Receive Date: 20111202
  Receipt Date: 20111121
  Transmission Date: 20120403
  Serious: Yes (Hospitalization, Other)
  Sender: FDA-Public Use
  Company Number: PHHY2011CA91358

PATIENT
  Sex: Male

DRUGS (1)
  1. EXJADE [Suspect]
     Indication: CHRONIC LYMPHOCYTIC LEUKAEMIA
     Dosage: 1250 MG
     Route: 048
     Dates: start: 20110701, end: 20110901

REACTIONS (2)
  - BLOOD BILIRUBIN INCREASED [None]
  - TRANSPLANT REJECTION [None]
